FAERS Safety Report 8207279-9 (Version None)
Quarter: 2012Q1

REPORT INFORMATION
  Report Type: 
  Country: None (occurrence: None)
  Receive Date: 20120314
  Receipt Date: 20120312
  Transmission Date: 20120608
  Serious: Yes (Hospitalization)
  Sender: FDA-Public Use
  Company Number: US-BAYER-2012-024468

PATIENT
  Age: 18 Year
  Sex: Female

DRUGS (1)
  1. BETASERON [Suspect]
     Indication: MULTIPLE SCLEROSIS
     Dosage: 0.3,MG, UNK
     Route: 058

REACTIONS (5)
  - BACK PAIN [None]
  - DEHYDRATION [None]
  - CREATININE RENAL CLEARANCE DECREASED [None]
  - NAUSEA [None]
  - VOMITING [None]
